FAERS Safety Report 5154164-5 (Version None)
Quarter: 2006Q4

REPORT INFORMATION
  Report Type: 
  Country: None (occurrence: None)
  Receive Date: 20061116
  Receipt Date: 20061116
  Transmission Date: 20070319
  Serious: Yes (Other)
  Sender: FDA-Public Use
  Company Number: None

PATIENT
  Age: 59 Year
  Sex: Female

DRUGS (6)
  1. SYNERCID [Suspect]
     Indication: INTESTINAL GANGRENE
     Dosage: 750 MG Q8 IV
     Route: 042
     Dates: start: 20050504, end: 20050512
  2. CARTIA XT [Concomitant]
  3. LISINOPRIL [Concomitant]
  4. METOPROLOL SUCCINATE [Concomitant]
  5. INDOCIN [Concomitant]
  6. METRONIDAZOLE [Concomitant]

REACTIONS (2)
  - BLOOD BILIRUBIN INCREASED [None]
  - JAUNDICE [None]
